FAERS Safety Report 9479442 (Version 1)
Quarter: 2013Q3

REPORT INFORMATION
  Report Type: Spontaneous
  Country: US (occurrence: US)
  Receive Date: 20130827
  Receipt Date: 20130827
  Transmission Date: 20140515
  Serious: No
  Sender: FDA-Public Use
  Company Number: US-PFIZER INC-2013245821

PATIENT
  Age: 57 Year
  Sex: Female

DRUGS (1)
  1. CHANTIX [Suspect]
     Indication: SMOKING CESSATION THERAPY
     Dosage: UNK
     Dates: start: 2013, end: 20130823

REACTIONS (8)
  - Depression [Unknown]
  - Crying [Unknown]
  - Mood altered [Unknown]
  - Abnormal dreams [Unknown]
  - Irritability [Unknown]
  - Nausea [Unknown]
  - Asthenia [Unknown]
  - Drug effect decreased [Unknown]
